FAERS Safety Report 9235726 (Version 1)
Quarter: 2013Q2

REPORT INFORMATION
  Report Type: Spontaneous
  Country: US (occurrence: None)
  Receive Date: 20130416
  Receipt Date: 20130416
  Transmission Date: 20140414
  Serious: Yes (Other)
  Sender: FDA-Public Use
  Company Number: None

PATIENT
  Age: 60 Year
  Sex: 0
  Weight: 88.45 kg

DRUGS (2)
  1. OMEPRAZOLE [Suspect]
     Indication: GASTROOESOPHAGEAL REFLUX DISEASE
     Dosage: 1 CAPSULE DAILY BUCCAL
     Route: 002
     Dates: start: 20130213, end: 20130406
  2. OMEPRAZOLE [Suspect]
     Indication: DYSPHAGIA
     Dosage: 1 CAPSULE DAILY BUCCAL
     Route: 002
     Dates: start: 20130213, end: 20130406

REACTIONS (1)
  - Herpes zoster [None]
